FAERS Safety Report 14789441 (Version 1)
Quarter: 2018Q2

REPORT INFORMATION
  Report Type: Spontaneous
  Country: CN (occurrence: CN)
  Receive Date: 20180423
  Receipt Date: 20180423
  Transmission Date: 20180711
  Serious: Yes (Other)
  Sender: FDA-Public Use
  Company Number: CN-ACS-001071

PATIENT
  Age: 40 Year
  Sex: Male

DRUGS (1)
  1. CEFTRIAXONE. [Suspect]
     Active Substance: CEFTRIAXONE
     Indication: PRIMARY SYPHILIS
     Route: 065

REACTIONS (2)
  - Pustular psoriasis [Recovered/Resolved]
  - Acute generalised exanthematous pustulosis [Recovered/Resolved]
